FAERS Safety Report 13295962 (Version 2)
Quarter: 2017Q1

REPORT INFORMATION
  Report Type: Spontaneous
  Country: US (occurrence: US)
  Receive Date: 20170303
  Receipt Date: 20170322
  Transmission Date: 20170428
  Serious: Yes (Hospitalization)
  Sender: FDA-Public Use
  Company Number: US-ENDO PHARMACEUTICALS INC-2017-000940

PATIENT
  Age: 70 Year
  Sex: Female
  Weight: 65.77 kg

DRUGS (6)
  1. FOLIC ACID TABLETS [Suspect]
     Active Substance: FOLIC ACID
     Dosage: 1 DF, OD
     Route: 048
     Dates: start: 201701
  2. VFEND [Suspect]
     Active Substance: VORICONAZOLE
     Indication: ASPERGILLUS INFECTION
     Dosage: 1 DF, BID
     Route: 048
     Dates: start: 201509, end: 201701
  3. ACICLOVIR [Suspect]
     Active Substance: ACYCLOVIR
     Indication: VIRAL INFECTION
     Dosage: 1 DF, BID
     Route: 048
     Dates: end: 201701
  4. MERCAPTOPURINE. [Concomitant]
     Active Substance: MERCAPTOPURINE
     Indication: PRODUCT USED FOR UNKNOWN INDICATION
     Dosage: UNK UNK, UNKNOWN
     Route: 065
  5. METHOTREXATE. [Concomitant]
     Active Substance: METHOTREXATE
     Indication: LEUKAEMIA
     Dosage: UNK UNK, UNKNOWN
     Route: 065
  6. FOLIC ACID TABLETS [Suspect]
     Active Substance: FOLIC ACID
     Indication: PROPHYLAXIS
     Dosage: 1 DF, OD
     Route: 048
     Dates: start: 2015, end: 201701

REACTIONS (2)
  - Liver function test increased [Recovering/Resolving]
  - White blood cell count decreased [Recovering/Resolving]

NARRATIVE: CASE EVENT DATE: 201701
